FAERS Safety Report 17196544 (Version 1)
Quarter: 2019Q4

REPORT INFORMATION
  Report Type: Spontaneous
  Country: US (occurrence: US)
  Receive Date: 20191224
  Receipt Date: 20191224
  Transmission Date: 20200122
  Serious: No
  Sender: FDA-Public Use
  Company Number: US-VERTEX PHARMACEUTICALS-2019-013039

PATIENT
  Age: 31 Year
  Sex: Female

DRUGS (1)
  1. TRIKAFTA [Suspect]
     Active Substance: ELEXACAFTOR\IVACAFTOR\TEZACAFTOR
     Indication: CYSTIC FIBROSIS
     Dosage: 100/50/75; 150MG; 2 ORANGE TABLETS IN AM AND 1 BLUE TABLET IN PM
     Route: 048
     Dates: start: 20191206

REACTIONS (1)
  - Productive cough [Unknown]

NARRATIVE: CASE EVENT DATE: 20191206
